FAERS Safety Report 19802353 (Version 1)
Quarter: 2021Q3

REPORT INFORMATION
  Report Type: Spontaneous
  Country: US (occurrence: US)
  Receive Date: 20210907
  Receipt Date: 20210907
  Transmission Date: 20211014
  Serious: No
  Sender: FDA-Public Use
  Company Number: None

PATIENT
  Age: 83 Year
  Sex: Female
  Weight: 66.6 kg

DRUGS (8)
  1. SIMVASTATIN. [Concomitant]
     Active Substance: SIMVASTATIN
  2. VITAMIN D [Concomitant]
     Active Substance: VITAMIN D NOS
  3. FISH OIL 1000MG [Concomitant]
  4. METOPROLOL  SUCC ER 25 MG [Suspect]
     Active Substance: METOPROLOL SUCCINATE
     Indication: CARDIAC DISORDER
     Dosage: ?          QUANTITY:1 TABLET(S);?
     Route: 048
     Dates: start: 20210620, end: 20210812
  5. CALCIUM [Concomitant]
     Active Substance: CALCIUM
  6. ASPIRIN. [Concomitant]
     Active Substance: ASPIRIN
  7. PIROXICAM 20MG TABLET [Concomitant]
     Active Substance: PIROXICAM
  8. ZOLPIDEM [Concomitant]
     Active Substance: ZOLPIDEM TARTRATE

REACTIONS (2)
  - Faecaloma [None]
  - Petechiae [None]

NARRATIVE: CASE EVENT DATE: 20210624
